FAERS Safety Report 22651420 (Version 1)
Quarter: 2023Q2

REPORT INFORMATION
  Report Type: Report from Study
  Country: HK (occurrence: HK)
  Receive Date: 20230628
  Receipt Date: 20230628
  Transmission Date: 20230722
  Serious: Yes (Hospitalization)
  Sender: FDA-Public Use
  Company Number: HK-TEVA-2023-HK-2901317

PATIENT
  Age: 54 Year
  Sex: Female
  Weight: 34.5 kg

DRUGS (1)
  1. METFORMIN [Suspect]
     Active Substance: METFORMIN HYDROCHLORIDE
     Indication: Diabetic ketoacidosis
     Dosage: 500 MILLIGRAM DAILY; 250 MG TWICE A DAY
     Route: 065

REACTIONS (1)
  - Neurological symptom [Recovered/Resolved]
